FAERS Safety Report 7490656-1 (Version None)
Quarter: 2011Q2

REPORT INFORMATION
  Report Type: 
  Country: None (occurrence: None)
  Receive Date: 20110519
  Receipt Date: 20110516
  Transmission Date: 20111010
  Serious: Yes (Other)
  Sender: FDA-Public Use
  Company Number: BR-PFIZER INC-2011105231

PATIENT
  Age: 57 Year
  Sex: Female
  Weight: 66 kg

DRUGS (5)
  1. VARENICLINE TARTRATE [Suspect]
     Indication: SMOKING CESSATION THERAPY
     Dosage: UNK
     Route: 048
     Dates: start: 20110508, end: 20110501
  2. LOSARTAN [Concomitant]
     Indication: HYPERTENSION
     Dosage: UNK
  3. VARENICLINE TARTRATE [Suspect]
     Dosage: 1 MG, 2X/DAY
     Route: 048
     Dates: start: 20110501
  4. CALCIUM [Concomitant]
     Indication: OSTEOPOROSIS
     Dosage: UNK
  5. VITAMIN C [Concomitant]
     Dosage: UNK

REACTIONS (5)
  - BLOOD PRESSURE INCREASED [None]
  - NAUSEA [None]
  - HEADACHE [None]
  - RETCHING [None]
  - STRESS [None]
